FAERS Safety Report 8588904-X (Version None)
Quarter: 2012Q3

REPORT INFORMATION
  Report Type: 
  Country: None (occurrence: None)
  Receive Date: 20120813
  Receipt Date: 20120807
  Transmission Date: 20120928
  Serious: Yes (Other)
  Sender: FDA-Public Use
  Company Number: US-PFIZER INC-2012192852

PATIENT
  Age: 55 Year
  Sex: Female
  Weight: 73.5 kg

DRUGS (5)
  1. NEURONTIN [Suspect]
     Dosage: 300 MG, 2X/DAY
     Route: 048
  2. NEURONTIN [Suspect]
     Dosage: 300 MG, 3X/DAY
     Route: 048
  3. NEURONTIN [Suspect]
     Indication: NEURALGIA
     Dosage: 900 MG (THREE OF 300MG CAPSULE), 3X/DAY
     Route: 048
     Dates: start: 20100101
  4. VICODIN [Concomitant]
     Indication: BACK PAIN
     Dosage: UNK
  5. MORPHINE [Concomitant]
     Indication: BACK PAIN
     Dosage: UNK

REACTIONS (4)
  - DRUG INEFFECTIVE [None]
  - BACK DISORDER [None]
  - THROMBOSIS [None]
  - PAIN [None]
